FAERS Safety Report 17961269 (Version 1)
Quarter: 2020Q2

REPORT INFORMATION
  Report Type: Spontaneous
  Country: FR (occurrence: FR)
  Receive Date: 20200630
  Receipt Date: 20200630
  Transmission Date: 20200714
  Serious: Yes (Other)
  Sender: FDA-Public Use
  Company Number: FR-ASTRAZENECA-2020SE81076

PATIENT
  Sex: Male
  Weight: 65 kg

DRUGS (2)
  1. ATORVASTATINE [Concomitant]
     Active Substance: ATORVASTATIN
     Indication: POSTOPERATIVE CARE
     Dosage: 80.0MG UNKNOWN
  2. BRILIQUE [Suspect]
     Active Substance: TICAGRELOR
     Route: 048
     Dates: start: 20200521

REACTIONS (3)
  - Dyspnoea [Unknown]
  - Pain in extremity [Unknown]
  - SARS-CoV-2 test negative [Unknown]
